FAERS Safety Report 4571633-7 (Version None)
Quarter: 2005Q1

REPORT INFORMATION
  Report Type: 
  Country: None (occurrence: None)
  Receive Date: 20050207
  Receipt Date: 20041001
  Transmission Date: 20050727
  Serious: Yes (Hospitalization)
  Sender: FDA-Public Use
  Company Number: 200417507US

PATIENT
  Sex: Female
  Weight: 56.8 kg

DRUGS (5)
  1. KETEK [Suspect]
     Indication: EAR DISCOMFORT
     Dates: start: 20040917, end: 20040918
  2. KETEK [Suspect]
     Indication: EAR INFECTION
     Dates: start: 20040917, end: 20040918
  3. ESTRATAB [Concomitant]
     Indication: HORMONE REPLACEMENT THERAPY
     Dosage: DOSE: UNKNOWN
  4. TAXOTERE [Concomitant]
     Dosage: DOSE: UNK
     Dates: end: 20040501
  5. GEMCITABINE [Concomitant]
     Dosage: DOSE: UNK
     Dates: end: 20040501

REACTIONS (5)
  - ASTHENIA [None]
  - DIZZINESS [None]
  - NAUSEA [None]
  - SURGERY [None]
  - VOMITING [None]
